FAERS Safety Report 8414726-6 (Version None)
Quarter: 2012Q2

REPORT INFORMATION
  Report Type: 
  Country: None (occurrence: None)
  Receive Date: 20120605
  Receipt Date: 20120530
  Transmission Date: 20120825
  Serious: No
  Sender: FDA-Public Use
  Company Number: US-AMGEN-USASP2012033808

PATIENT
  Age: 69 Year
  Sex: Female

DRUGS (11)
  1. ZOCOR [Concomitant]
     Dosage: UNK MG, UNK
  2. SPIRIVA [Concomitant]
     Dosage: UNK MUG, UNK
  3. ENBREL [Suspect]
     Indication: RHEUMATOID ARTHRITIS
     Dosage: 50 MG, QWK
     Dates: start: 20120301
  4. CALCIUM [Concomitant]
     Dosage: UNK MG, UNK
  5. LORAZEPAM [Concomitant]
     Dosage: UNK MG, UNK
  6. VITAMIN D [Concomitant]
     Dosage: UNK IU, UNK
  7. SINGULAIR [Concomitant]
     Dosage: UNK MG, UNK
  8. AMBIEN [Concomitant]
     Dosage: UNK MG, UNK
  9. DIGESTIVE BIO BALANCE [Concomitant]
     Dosage: UNK
  10. MULTIPLE VITAMINS [Concomitant]
     Dosage: UNK
  11. TUSSIONEX                          /00004701/ [Concomitant]
     Dosage: UNK

REACTIONS (1)
  - LUNG INFECTION [None]
